FAERS Safety Report 5859106-2 (Version None)
Quarter: 2008Q3

REPORT INFORMATION
  Report Type: 
  Country: None (occurrence: None)
  Receive Date: 20080825
  Receipt Date: 20080813
  Transmission Date: 20090109
  Serious: Yes (Other)
  Sender: FDA-Public Use
  Company Number: 08H-122-0314778-00

PATIENT
  Age: 41 Year
  Sex: Male
  Weight: 135 kg

DRUGS (3)
  1. PENTOTHAL [Suspect]
     Indication: INDUCTION OF ANAESTHESIA
     Dosage: 500 MG, 1 IN 1 DOSE, INTRAVENOUS
     Route: 042
     Dates: start: 20071119, end: 20071119
  2. SUXAMETHONIUM (SUXAMETHONIUM) [Suspect]
     Indication: ENDOTRACHEAL INTUBATION
     Dosage: 150 MG, 1 IN 1 DOSE, INTRAVENOUS
     Route: 042
     Dates: start: 20071119, end: 20071119
  3. FENTANYL-100 [Suspect]
     Indication: INDUCTION OF ANAESTHESIA
     Dosage: 0.2 MG, 1 IN 1 DOSE, INTRAVENOUS
     Route: 042
     Dates: start: 20071119, end: 20071119

REACTIONS (5)
  - BRONCHOSPASM [None]
  - FLUSHING [None]
  - OXYGEN SATURATION DECREASED [None]
  - TACHYCARDIA [None]
  - URTICARIA [None]
